FAERS Safety Report 10089540 (Version 1)
Quarter: 2014Q2

REPORT INFORMATION
  Report Type: Spontaneous
  Country: US (occurrence: US)
  Receive Date: 20140421
  Receipt Date: 20140421
  Transmission Date: 20141212
  Serious: Yes (Other)
  Sender: FDA-Public Use
  Company Number: US-ELI_LILLY_AND_COMPANY-US201404003855

PATIENT
  Age: 84 Year
  Sex: Female

DRUGS (2)
  1. CYMBALTA [Suspect]
     Indication: BACK PAIN
     Dosage: 60 MG, EACH EVENING
     Route: 065
     Dates: start: 201402, end: 20140407
  2. HYDROCODONE [Concomitant]
     Indication: PAIN
     Dosage: 1 DF, UNKNOWN
     Route: 065

REACTIONS (3)
  - Swelling face [Unknown]
  - Urinary tract infection [Unknown]
  - Diarrhoea [Not Recovered/Not Resolved]
